FAERS Safety Report 7596140-9 (Version None)
Quarter: 2011Q3

REPORT INFORMATION
  Report Type: 
  Country: None (occurrence: None)
  Receive Date: 20110707
  Receipt Date: 20110628
  Transmission Date: 20111222
  Serious: Yes (Disabling, Other)
  Sender: FDA-Public Use
  Company Number: TR-US-EMD SERONO, INC.-7067945

PATIENT
  Sex: Male
  Weight: 94 kg

DRUGS (4)
  1. REBIF [Suspect]
     Indication: MULTIPLE SCLEROSIS
     Route: 058
     Dates: start: 20090901
  2. LIPANTHYL [PHENOFIBRATE] [Concomitant]
     Indication: PRODUCT USED FOR UNKNOWN INDICATION
     Dates: start: 20090101
  3. METFORMIN HCL [Concomitant]
     Indication: DIABETES MELLITUS
     Route: 048
     Dates: start: 20070101
  4. BETANORM [Concomitant]
     Indication: DIABETES MELLITUS
     Route: 048
     Dates: start: 20110301

REACTIONS (3)
  - GASTRIC ULCER [None]
  - GAIT DISTURBANCE [None]
  - HYPOAESTHESIA [None]
